FAERS Safety Report 4363773-2 (Version None)
Quarter: 2004Q2

REPORT INFORMATION
  Report Type: 
  Country: None (occurrence: None)
  Receive Date: 20040521
  Receipt Date: 20040506
  Transmission Date: 20050107
  Serious: Yes (Hospitalization)
  Sender: FDA-Public Use
  Company Number: 2004018634

PATIENT
  Age: 10 Year
  Sex: Female
  Weight: 24 kg

DRUGS (14)
  1. NORVASC [Suspect]
     Indication: HYPERTENSION
     Dosage: 5 MG (1 IN 1 D), ORAL
     Route: 048
     Dates: start: 20030101
  2. SPIRONOLACTONE [Suspect]
     Indication: RENOVASCULAR HYPERTENSION
     Dosage: 25 MG (1 IN 1 D), ORAL
     Route: 048
     Dates: start: 19960501
  3. SOMATROPIN (SOMATROPIN) [Suspect]
     Indication: ILL-DEFINED DISORDER
     Dates: start: 20010101
  4. DIGOXIN [Suspect]
     Indication: CARDIAC FAILURE
     Dates: start: 20020101
  5. ALLOPURINOL [Suspect]
     Indication: ILL-DEFINED DISORDER
     Dosage: ORAL
     Route: 048
  6. FUROSEMIDE [Suspect]
     Indication: RENOVASCULAR HYPERTENSION
     Dosage: ORAL
     Route: 048
     Dates: start: 19960101
  7. NIFEDIPINE [Concomitant]
  8. LOSARTAN POTASSIUM [Concomitant]
  9. CARVEDILOL [Concomitant]
  10. NIFEDIPINE [Concomitant]
  11. CANDESARTAN CILEXETIL (CANDESARTAN CILEXETIL) [Concomitant]
  12. DIGOXIN [Concomitant]
  13. SOMATROPIN (SOMATROPIN) [Concomitant]
  14. ALLOPURINOL [Concomitant]

REACTIONS (11)
  - ASPARTATE AMINOTRANSFERASE INCREASED [None]
  - BLOOD ALKALINE PHOSPHATASE INCREASED [None]
  - BLOOD IMMUNOGLOBULIN M INCREASED [None]
  - BLOOD LACTATE DEHYDROGENASE INCREASED [None]
  - BLOOD PRESSURE SYSTOLIC INCREASED [None]
  - BLOOD UREA INCREASED [None]
  - DYSPNOEA [None]
  - HYPOGAMMAGLOBULINAEMIA [None]
  - LUNG INFILTRATION [None]
  - PULMONARY HAEMORRHAGE [None]
  - PYREXIA [None]
